FAERS Safety Report 11274070 (Version 1)
Quarter: 2015Q3

REPORT INFORMATION
  Report Type: Spontaneous
  Country: GB (occurrence: GB)
  Receive Date: 20150715
  Receipt Date: 20150715
  Transmission Date: 20151125
  Serious: Yes (Other)
  Sender: FDA-Public Use
  Company Number: GB-GLAXOSMITHKLINE INC.-GB2015100865

PATIENT
  Age: 47 Year
  Sex: Female
  Weight: 57 kg

DRUGS (10)
  1. NAPROXEN. [Concomitant]
     Active Substance: NAPROXEN
     Dosage: TAKE ONE TWICE DAILY
     Dates: start: 20150518, end: 20150601
  2. TIOTROPIUM [Concomitant]
     Active Substance: TIOTROPIUM
     Route: 055
     Dates: start: 20150305
  3. PREDNISOLONE. [Concomitant]
     Active Substance: PREDNISOLONE
     Dates: start: 20150618, end: 20150625
  4. DOXYCYCLINE. [Concomitant]
     Active Substance: DOXYCYCLINE
     Dosage: TWO ONCE DAILY
     Dates: start: 20150618, end: 20150623
  5. LOSARTAN. [Concomitant]
     Active Substance: LOSARTAN
     Dates: start: 20150305
  6. ANORO ELLIPTA [Suspect]
     Active Substance: UMECLIDINIUM BROMIDE\VILANTEROL TRIFENATATE
     Dates: start: 20150618
  7. AMLODIPINE [Concomitant]
     Active Substance: AMLODIPINE BESYLATE
     Dates: start: 20150305
  8. CLOTRIMAZOLE. [Concomitant]
     Active Substance: CLOTRIMAZOLE
     Dosage: USE AS DIRECTED
     Dates: start: 20150618, end: 20150625
  9. SALBUTAMOL [Concomitant]
     Active Substance: ALBUTEROL
     Route: 055
     Dates: start: 20150305
  10. SEREVENT DISKUS [Concomitant]
     Active Substance: SALMETEROL XINAFOATE
     Route: 055
     Dates: start: 20150703

REACTIONS (2)
  - Wheezing [Recovering/Resolving]
  - Hypotension [Recovering/Resolving]

NARRATIVE: CASE EVENT DATE: 20150703
